FAERS Safety Report 6287787-0 (Version None)
Quarter: 2009Q3

REPORT INFORMATION
  Report Type: 
  Country: None (occurrence: None)
  Receive Date: 20090729
  Receipt Date: 20071126
  Transmission Date: 20100115
  Serious: Yes (Hospitalization, Other)
  Sender: FDA-Public Use
  Company Number: US-ASTRAZENECA-2006UW10695

PATIENT
  Age: 21188 Day
  Sex: Female
  Weight: 91.6 kg

DRUGS (24)
  1. SEROQUEL [Suspect]
     Indication: BIPOLAR DISORDER
     Route: 048
     Dates: start: 20040701, end: 20060801
  2. SEROQUEL [Suspect]
     Indication: BIPOLAR I DISORDER
     Route: 048
     Dates: start: 20040701, end: 20060801
  3. SEROQUEL [Suspect]
     Dosage: 25 MG - 400 MG
     Route: 048
     Dates: start: 20040715
  4. SEROQUEL [Suspect]
     Dosage: 25 MG - 400 MG
     Route: 048
     Dates: start: 20040715
  5. TOPROL-XL [Concomitant]
  6. VICODIN [Concomitant]
  7. DOXYCYCLINE [Concomitant]
  8. PROTONIX [Concomitant]
  9. VYTORIN [Concomitant]
  10. WELLBUTRIN [Concomitant]
  11. GLUCOTROL XL [Concomitant]
  12. CATAPRES-TTS-1 [Concomitant]
  13. WELCHOL [Concomitant]
  14. INSULIN NOVOLIN [Concomitant]
  15. ALEVE [Concomitant]
  16. LYRICA [Concomitant]
  17. PAXIL [Concomitant]
  18. ATIVAN [Concomitant]
  19. METFORMIN [Concomitant]
  20. KLONOPIN [Concomitant]
  21. AMBIEN [Concomitant]
  22. MIRALAX [Concomitant]
  23. NOVOLOG [Concomitant]
  24. LAMICTAL [Concomitant]

REACTIONS (3)
  - ALCOHOLIC PANCREATITIS [None]
  - DIABETES MELLITUS [None]
  - PANCREATITIS [None]
